FAERS Safety Report 6152599-5 (Version None)
Quarter: 2009Q2

REPORT INFORMATION
  Report Type: 
  Country: None (occurrence: None)
  Receive Date: 20090413
  Receipt Date: 20090330
  Transmission Date: 20091009
  Serious: Yes (Other)
  Sender: FDA-Public Use
  Company Number: US-ELI_LILLY_AND_COMPANY-US200812004398

PATIENT
  Sex: Female
  Weight: 110.66 kg

DRUGS (7)
  1. CYMBALTA [Suspect]
     Indication: FIBROMYALGIA
     Dosage: 30 MG, DAILY (1/D)
     Dates: start: 20070921, end: 20080201
  2. CYMBALTA [Suspect]
     Dosage: 60 MG, UNK
     Dates: start: 20080201
  3. CYMBALTA [Suspect]
     Dosage: 30 MG, QOD
     Dates: start: 20080819, end: 20080825
  4. CYMBALTA [Suspect]
     Dosage: 60 MG, QOD
     Dates: start: 20080819, end: 20080825
  5. CYMBALTA [Suspect]
     Dosage: 30 MG, DAILY (1/D)
     Dates: start: 20080826, end: 20080901
  6. CYMBALTA [Suspect]
     Dosage: 30 MG, QOD
     Dates: start: 20080902, end: 20080907
  7. ELAVIL [Concomitant]
     Dosage: 50 MG, EACH EVENING
     Dates: start: 20070921

REACTIONS (10)
  - CHEST PAIN [None]
  - DRUG INEFFECTIVE [None]
  - DRUG WITHDRAWAL SYNDROME [None]
  - DYSPNOEA [None]
  - FIBROMYALGIA [None]
  - HEADACHE [None]
  - NAUSEA [None]
  - PAIN [None]
  - SINUSITIS [None]
  - VENTRICULAR EXTRASYSTOLES [None]
